FAERS Safety Report 6741140-1 (Version None)
Quarter: 2010Q2

REPORT INFORMATION
  Report Type: 
  Country: None (occurrence: None)
  Receive Date: 20100526
  Receipt Date: 20100519
  Transmission Date: 20101027
  Serious: Yes (Hospitalization)
  Sender: FDA-Public Use
  Company Number: JP-BAYER-200915298BYL

PATIENT
  Age: 76 Year
  Sex: Male

DRUGS (6)
  1. NEXAVAR [Suspect]
     Indication: HEPATIC NEOPLASM MALIGNANT
     Dosage: UNIT DOSE: 200 MG
     Route: 048
     Dates: start: 20091016, end: 20091214
  2. URSO 250 [Concomitant]
     Indication: PROPHYLAXIS
     Dosage: UNIT DOSE: 100 MG
     Route: 048
  3. NEUER [Concomitant]
     Indication: GASTRIC DISORDER
     Dosage: SINCE BEFORE ADMINISTRATION
     Route: 048
  4. SEVEN E_P [Concomitant]
     Indication: GASTRIC DISORDER
     Dosage: SINCE BEFORE ADMINISTRATION
     Route: 048
  5. TAKEPRON [Concomitant]
     Indication: GASTRIC DISORDER
     Dosage: UNIT DOSE: 15 MG
     Route: 048
  6. IA-CALL [Concomitant]
     Indication: HEPATIC ARTERY EMBOLISM
     Dosage: UNIT DOSE: 50 MG
     Route: 042
     Dates: start: 20090918, end: 20090918

REACTIONS (3)
  - ALOPECIA [None]
  - ASCITES [None]
  - PLEURAL EFFUSION [None]
